APPROVED DRUG PRODUCT: CEFADROXIL
Active Ingredient: CEFADROXIL/CEFADROXIL HEMIHYDRATE
Strength: EQ 500MG BASE
Dosage Form/Route: CAPSULE;ORAL
Application: A065352 | Product #001 | TE Code: AB
Applicant: AUROBINDO PHARMA LTD
Approved: Jan 25, 2007 | RLD: No | RS: No | Type: RX